FAERS Safety Report 16857990 (Version 2)
Quarter: 2019Q4

REPORT INFORMATION
  Report Type: Other
  Country: US (occurrence: US)
  Receive Date: 20190926
  Receipt Date: 20191016
  Transmission Date: 20200122
  Serious: Yes (Other)
  Sender: FDA-Public Use
  Company Number: US-AMAG PHARMACEUTICALS, INC.-AMAG201904843

PATIENT
  Age: 0 Day
  Sex: Male
  Weight: 1.01 kg

DRUGS (1)
  1. MAKENA [Suspect]
     Active Substance: HYDROXYPROGESTERONE CAPROATE
     Indication: FOETAL EXPOSURE DURING DELIVERY
     Dosage: 250 MG/ML, WEEKLY
     Route: 064
     Dates: start: 20190520, end: 20190730

REACTIONS (3)
  - Premature baby [Unknown]
  - Nonreassuring foetal heart rate pattern [Unknown]
  - Foetal growth restriction [Unknown]

NARRATIVE: CASE EVENT DATE: 20190816
